FAERS Safety Report 9100541 (Version 2)
Quarter: 2013Q2

REPORT INFORMATION
  Report Type: Spontaneous
  Country: CA (occurrence: CA)
  Receive Date: 20130215
  Receipt Date: 20130408
  Transmission Date: 20140414
  Serious: Yes (Other)
  Sender: FDA-Public Use
  Company Number: PHHY2013CA015041

PATIENT
  Age: 66 Year
  Sex: Female

DRUGS (9)
  1. ACLASTA [Suspect]
     Indication: OSTEOPOROSIS POSTMENOPAUSAL
     Dosage: 5 MG, ONCE A YEAR
     Route: 042
     Dates: start: 20081201
  2. ACLASTA [Suspect]
     Dosage: UNK UKN, UNK
     Route: 042
     Dates: start: 20091209
  3. ACLASTA [Suspect]
     Dosage: UNK UKN, UNK
     Route: 042
     Dates: start: 20101207
  4. ACLASTA [Suspect]
     Dosage: UNK UKN, UNK
     Route: 042
     Dates: start: 20111202
  5. SALOFALK ^AVENTIS^ [Concomitant]
     Indication: COLITIS
  6. TETRACYCLINE [Concomitant]
     Indication: ROSACEA
     Dosage: 500 MG, DAILY
  7. CALCIUM [Concomitant]
  8. VITAMIN D [Concomitant]
  9. CYANOCOBALAMIN [Concomitant]
     Dosage: 250 MG, BID

REACTIONS (4)
  - Upper limb fracture [Unknown]
  - Fall [Recovering/Resolving]
  - Limb injury [Recovering/Resolving]
  - Humerus fracture [Recovering/Resolving]
